FAERS Safety Report 23102981 (Version 1)
Quarter: 2023Q4

REPORT INFORMATION
  Report Type: Spontaneous
  Country: US (occurrence: US)
  Receive Date: 20231025
  Receipt Date: 20231025
  Transmission Date: 20240110
  Serious: Yes (Life-Threatening, Hospitalization, Other)
  Sender: FDA-Public Use
  Company Number: US-MLMSERVICE-20231004-4581019-1

PATIENT

DRUGS (1)
  1. CISPLATIN [Suspect]
     Active Substance: CISPLATIN
     Indication: Carcinoid tumour
     Dosage: 1 DOSAGE FORM, SINGLE
     Route: 065

REACTIONS (8)
  - Hepatic enzyme increased [Recovering/Resolving]
  - Tumour lysis syndrome [Recovering/Resolving]
  - Acute kidney injury [Recovering/Resolving]
  - Urinary tract infection [Recovering/Resolving]
  - Hepatomegaly [Recovering/Resolving]
  - Septic shock [Recovering/Resolving]
  - Acute respiratory failure [Recovering/Resolving]
  - Toxic encephalopathy [Recovering/Resolving]
